FAERS Safety Report 4978931-3 (Version None)
Quarter: 2006Q2

REPORT INFORMATION
  Report Type: 
  Country: None (occurrence: None)
  Receive Date: 20060417
  Receipt Date: 20060403
  Transmission Date: 20061013
  Serious: Yes (Other)
  Sender: FDA-Public Use
  Company Number: 2006041573

PATIENT
  Age: 40 Year
  Sex: Male

DRUGS (1)
  1. CELEBREX [Suspect]
     Indication: REPETITIVE STRAIN INJURY
     Dosage: 200 MG (200 MG, 1 IN 1 D), ORAL
     Route: 048
     Dates: start: 20060101, end: 20060101

REACTIONS (8)
  - BLISTER [None]
  - DYSPHAGIA [None]
  - LOCAL SWELLING [None]
  - PAIN [None]
  - PRURITUS [None]
  - SCAR [None]
  - ULCER [None]
  - URTICARIA GENERALISED [None]
